FAERS Safety Report 13821171 (Version 1)
Quarter: 2017Q3

REPORT INFORMATION
  Report Type: Spontaneous
  Country: NL (occurrence: NL)
  Receive Date: 20170801
  Receipt Date: 20170801
  Transmission Date: 20171127
  Serious: Yes (Other)
  Sender: FDA-Public Use
  Company Number: NL-CIPLA LTD.-2017NL13496

PATIENT

DRUGS (6)
  1. LAMIVUDINE. [Suspect]
     Active Substance: LAMIVUDINE
     Indication: CONGENITAL HIV INFECTION
     Dosage: 160 MG, 1 DD
     Route: 065
  2. ABACAVIR. [Suspect]
     Active Substance: ABACAVIR
     Indication: CONGENITAL HIV INFECTION
     Dosage: 320 MG, 1 DD
     Route: 065
  3. FLUTICASONE. [Interacting]
     Active Substance: FLUTICASONE
     Indication: RHINITIS
     Dosage: 27.5 MCG, 1-2 DD, IN EACH NOSTRIL
     Route: 045
  4. LOPINAVIR [Suspect]
     Active Substance: LOPINAVIR
     Indication: CONGENITAL HIV INFECTION
     Dosage: 320 MG, 1 DD
     Route: 065
  5. FLUTICASONE. [Interacting]
     Active Substance: FLUTICASONE
     Dosage: UNK, 2 DD
     Route: 065
  6. RITONAVIR. [Interacting]
     Active Substance: RITONAVIR
     Indication: CONGENITAL HIV INFECTION
     Dosage: 80 MG, 1 DD
     Route: 065

REACTIONS (2)
  - Drug interaction [Unknown]
  - Cushing^s syndrome [Recovered/Resolved]
